FAERS Safety Report 6896311-0 (Version None)
Quarter: 2010Q3

REPORT INFORMATION
  Report Type: 
  Country: None (occurrence: None)
  Receive Date: 20100802
  Receipt Date: 20100719
  Transmission Date: 20110219
  Serious: Yes (Hospitalization)
  Sender: FDA-Public Use
  Company Number: DE-GENENTECH-301658

PATIENT
  Age: 68 Year
  Sex: Female
  Weight: 77 kg

DRUGS (18)
  1. MABTHERA [Suspect]
     Indication: RHEUMATOID ARTHRITIS
     Dosage: 1000 MG, UNK
     Route: 042
     Dates: start: 20100112
  2. MABTHERA [Suspect]
     Dosage: 1000 MG, UNK
     Route: 042
     Dates: start: 20100126
  3. PREDNISOLON [Concomitant]
     Indication: RHEUMATOID ARTHRITIS
     Dosage: 10 MG, QD
     Route: 048
     Dates: start: 20041101
  4. PREDNISOLON [Concomitant]
     Dosage: 5 MG, QD
     Route: 048
  5. PANTOZOL [Concomitant]
     Indication: GASTRITIS
     Dosage: 40 MG, QAM
     Route: 048
  6. DURAGESIC-100 [Concomitant]
     Indication: PAIN
     Dosage: 150 A?G, Q3D
     Route: 062
  7. LYRICA [Concomitant]
     Indication: PAIN
     Dosage: 150 MG, TID
     Route: 048
  8. DICLOFENAC [Concomitant]
     Indication: PAIN
     Dosage: 100 MG, QAM
     Route: 048
  9. DICLOFENAC [Concomitant]
     Dosage: 50 MG, BID
     Route: 048
  10. METFORMIN HCL [Concomitant]
     Indication: DIABETES MELLITUS
     Dosage: 850 MG, TID
     Route: 048
  11. JANUVIA [Concomitant]
     Indication: DIABETES MELLITUS
     Dosage: 100 MG, QD
     Route: 065
  12. CYMBALTA [Concomitant]
     Indication: URINARY INCONTINENCE
     Dosage: 120 MG, QD
     Route: 065
  13. METOPROLOL [Concomitant]
     Indication: HYPERTENSION
     Dosage: 95 MG, QD
     Route: 048
  14. FERROUS GLYCINE SULFATE [Concomitant]
     Indication: ANAEMIA
     Dosage: UNK
     Route: 065
  15. ACETYLSALICYLIC ACID SRT [Concomitant]
     Indication: PRODUCT USED FOR UNKNOWN INDICATION
     Dosage: 100 MG, QD
     Route: 065
  16. TORSEMIDE [Concomitant]
     Indication: PRODUCT USED FOR UNKNOWN INDICATION
     Dosage: UNK
     Route: 065
  17. CALCIUM NOS [Concomitant]
     Indication: PRODUCT USED FOR UNKNOWN INDICATION
     Route: 065
  18. VITAMIN D [Concomitant]
     Indication: PRODUCT USED FOR UNKNOWN INDICATION
     Route: 065

REACTIONS (4)
  - CEREBROVASCULAR ACCIDENT [None]
  - CRANIAL NERVE INFECTION [None]
  - ENCEPHALITIS BRAIN STEM [None]
  - VIRAL INFECTION [None]
